FAERS Safety Report 26206802 (Version 1)
Quarter: 2025Q4

REPORT INFORMATION
  Report Type: Spontaneous
  Country: US (occurrence: US)
  Receive Date: 20251229
  Receipt Date: 20251229
  Transmission Date: 20260118
  Serious: No
  Sender: CIPLA
  Company Number: US-CIPLA LTD.-2025US16154

PATIENT

DRUGS (3)
  1. ALBUTEROL [Suspect]
     Active Substance: ALBUTEROL
     Indication: Bronchiectasis
     Dosage: 180 MICROGRAM, PRN (2 PUFFS TWICE A DAY/EVERY 4 HOURS, AS NEEDED), REGULAR USER
     Route: 065
  2. ALBUTEROL [Suspect]
     Active Substance: ALBUTEROL
     Indication: Respiratory tract infection
     Dosage: 180 MICROGRAM, PRN (2 PUFFS TWICE A DAY/EVERY 4 HOURS, AS NEEDED), EXPIRED PRODUCT
     Route: 065
  3. ALBUTEROL [Suspect]
     Active Substance: ALBUTEROL
     Dosage: 180 MICROGRAM, PRN (2 PUFFS TWICE A DAY/EVERY 4 HOURS, AS NEEDED)
     Route: 065
     Dates: start: 202512

REACTIONS (5)
  - Off label use [Unknown]
  - Wrong technique in product usage process [Unknown]
  - Product knowledge deficit [Unknown]
  - Expired product administered [Unknown]
  - Device delivery system issue [Unknown]

NARRATIVE: CASE EVENT DATE: 20251201
